FAERS Safety Report 14241421 (Version 1)
Quarter: 2017Q4

REPORT INFORMATION
  Report Type: Spontaneous
  Country: US (occurrence: US)
  Receive Date: 20171130
  Receipt Date: 20171130
  Transmission Date: 20180321
  Serious: No
  Sender: FDA-Public Use
  Company Number: US-BRISTOL-MYERS SQUIBB COMPANY-BMS-2017-107555

PATIENT
  Sex: Female

DRUGS (1)
  1. EMPLICITI [Suspect]
     Active Substance: ELOTUZUMAB
     Indication: PRODUCT USED FOR UNKNOWN INDICATION
     Route: 065

REACTIONS (8)
  - Back pain [Unknown]
  - Vomiting [Unknown]
  - Cough [Unknown]
  - Malaise [Unknown]
  - Diarrhoea [Unknown]
  - Constipation [Unknown]
  - Rhinorrhoea [Unknown]
  - Chest pain [Unknown]
